FAERS Safety Report 6002910-0 (Version None)
Quarter: 2008Q4

REPORT INFORMATION
  Report Type: 
  Country: None (occurrence: None)
  Receive Date: 20081215
  Receipt Date: 20071108
  Transmission Date: 20090506
  Serious: No
  Sender: FDA-Public Use
  Company Number: US-AMGEN-KDL251787

PATIENT
  Sex: Female

DRUGS (2)
  1. ENBREL [Suspect]
     Indication: RHEUMATOID ARTHRITIS
     Route: 058
     Dates: start: 20070930
  2. METHOTREXATE [Concomitant]
     Route: 048
     Dates: start: 20070910

REACTIONS (2)
  - ARTHRALGIA [None]
  - CHONDROPATHY [None]
